FAERS Safety Report 5906043-0 (Version None)
Quarter: 2008Q4

REPORT INFORMATION
  Report Type: 
  Country: None (occurrence: None)
  Receive Date: 20081002
  Receipt Date: 20080929
  Transmission Date: 20090506
  Serious: Yes (Death)
  Sender: FDA-Public Use
  Company Number: US-ABBOTT-08P-163-0478883-00

PATIENT
  Sex: Female
  Weight: 97.1 kg

DRUGS (1)
  1. KALETRA [Suspect]
     Indication: GLIOBLASTOMA MULTIFORME
     Dosage: 400/100 MG
     Route: 048
     Dates: start: 20080724, end: 20080908

REACTIONS (1)
  - GENERAL PHYSICAL HEALTH DETERIORATION [None]
